FAERS Safety Report 22026141 (Version 1)
Quarter: 2023Q1

REPORT INFORMATION
  Report Type: Report from Study
  Country: MX (occurrence: MX)
  Receive Date: 20230223
  Receipt Date: 20230223
  Transmission Date: 20230418
  Serious: Yes (Other)
  Sender: FDA-Public Use
  Company Number: MX-002147023-NVSC2023MX039081

PATIENT
  Sex: Male

DRUGS (1)
  1. TASIGNA [Suspect]
     Active Substance: NILOTINIB
     Indication: Chronic myeloid leukaemia
     Dosage: UNK
     Route: 048

REACTIONS (3)
  - Poisoning [Unknown]
  - Full blood count decreased [Unknown]
  - Haemoglobin decreased [Unknown]
